FAERS Safety Report 8433639-7 (Version None)
Quarter: 2012Q2

REPORT INFORMATION
  Report Type: 
  Country: None (occurrence: None)
  Receive Date: 20120613
  Receipt Date: 20120604
  Transmission Date: 20120825
  Serious: Yes (Hospitalization, Other)
  Sender: FDA-Public Use
  Company Number: FR-ABBOTT-12P-056-0942752-00

PATIENT
  Sex: Male

DRUGS (14)
  1. ASPEGIC 1000 [Concomitant]
     Indication: PRODUCT USED FOR UNKNOWN INDICATION
  2. CLARITHROMYCIN [Suspect]
     Indication: ERYSIPELAS
     Route: 048
     Dates: start: 20110801
  3. HYPERIUM [Concomitant]
     Indication: PRODUCT USED FOR UNKNOWN INDICATION
  4. NEORAL [Interacting]
     Indication: PRODUCT USED FOR UNKNOWN INDICATION
     Route: 048
     Dates: end: 20110801
  5. CRESTOR [Concomitant]
     Indication: PRODUCT USED FOR UNKNOWN INDICATION
  6. PREDNISOLONE [Concomitant]
     Indication: PRODUCT USED FOR UNKNOWN INDICATION
  7. COZAAR [Concomitant]
     Indication: PRODUCT USED FOR UNKNOWN INDICATION
  8. NEORAL [Interacting]
     Route: 048
     Dates: start: 20110817
  9. EVEROLIMUS [Interacting]
     Indication: PRODUCT USED FOR UNKNOWN INDICATION
     Route: 048
  10. EVEROLIMUS [Interacting]
     Route: 048
     Dates: start: 20110817
  11. EVEROLIMUS [Interacting]
     Dates: start: 20110902
  12. RABEPRAZOLE SODIUM [Concomitant]
     Indication: PRODUCT USED FOR UNKNOWN INDICATION
  13. BISOPROLOL FUMARATE [Concomitant]
     Indication: PRODUCT USED FOR UNKNOWN INDICATION
  14. ALLOPURINOL [Concomitant]
     Indication: PRODUCT USED FOR UNKNOWN INDICATION

REACTIONS (14)
  - ACIDOSIS [None]
  - GLOMERULOSCLEROSIS [None]
  - RENAL ISCHAEMIA [None]
  - ANAEMIA [None]
  - NEPHROPATHY TOXIC [None]
  - DRUG INTERACTION [None]
  - RENAL FAILURE ACUTE [None]
  - HAEMATURIA [None]
  - VASCULAR OCCLUSION [None]
  - TUBULOINTERSTITIAL NEPHRITIS [None]
  - THROMBOCYTOPENIA [None]
  - ARTERIAL DISORDER [None]
  - KIDNEY FIBROSIS [None]
  - RENAL TUBULAR ATROPHY [None]
